FAERS Safety Report 26157693 (Version 1)
Quarter: 2025Q4

REPORT INFORMATION
  Report Type: Spontaneous
  Country: CA (occurrence: CA)
  Receive Date: 20251215
  Receipt Date: 20251215
  Transmission Date: 20260117
  Serious: Yes (Other)
  Sender: ALEXION PHARMACEUTICALS
  Company Number: CA-HALEON-2278273

PATIENT
  Age: 53 Year
  Sex: Male

DRUGS (94)
  1. NEXIUM [Suspect]
     Active Substance: ESOMEPRAZOLE MAGNESIUM
     Dosage: DOSE FORM: CAPSULE, DELAYED RELEASE
     Route: 061
  2. VOLTAREN [Suspect]
     Active Substance: DICLOFENAC SODIUM
     Indication: Product used for unknown indication
     Dosage: ROUTE: UNKNOWN
     Route: 065
  3. VOLTAREN [Suspect]
     Active Substance: DICLOFENAC SODIUM
     Indication: Migraine
     Dosage: ROUTE: UNKNOWN
  4. ADVIL [Suspect]
     Active Substance: IBUPROFEN
     Indication: Product used for unknown indication
     Dosage: ROUTE: UNKNOWN
     Route: 065
  5. ACETAMINOPHEN [Suspect]
     Active Substance: ACETAMINOPHEN
     Indication: Migraine
     Dosage: ROUTE: UNKNOWN
  6. ACETAMINOPHEN [Suspect]
     Active Substance: ACETAMINOPHEN
     Dosage: DOSE FORM: NOT SPECIFIED, ROUTE: UNKNOWN
  7. BOTULINUM TOXIN TYPE A [Suspect]
     Active Substance: BOTULINUM TOXIN TYPE A
     Indication: Product used for unknown indication
     Dosage: DOSE FORM: POWDER FOR SOLUTION, ROUTE: UNKNOWN
     Route: 065
  8. BOTULINUM TOXIN TYPE A [Suspect]
     Active Substance: BOTULINUM TOXIN TYPE A
     Dosage: ROUTE: OTHER
  9. CELECOXIB [Suspect]
     Active Substance: CELECOXIB
     Indication: Product used for unknown indication
     Dosage: ROUTE: UNKNOWN
     Route: 065
  10. CODEINE [Suspect]
     Active Substance: CODEINE
     Indication: Migraine
     Dosage: DOSE FORM: NOT SPECIFIED, ROUTE: UNKNOWN
     Route: 065
  11. DEMEROL [Suspect]
     Active Substance: MEPERIDINE HYDROCHLORIDE
     Indication: Product used for unknown indication
     Dosage: DOSE FORM: NOT SPECIFIED, ROUTE: UNKNOWN
     Route: 065
  12. DICLOFENAC SODIUM [Suspect]
     Active Substance: DICLOFENAC SODIUM
     Indication: Product used for unknown indication
     Dosage: ROUTE: UNKNOWN
     Route: 065
  13. DIHYDROERGOTAMINE MESYLATE [Suspect]
     Active Substance: DIHYDROERGOTAMINE MESYLATE
     Indication: Migraine
     Dosage: ROUTE: UNKNOWN
     Route: 065
  14. DULOXETINE HYDROCHLORIDE [Suspect]
     Active Substance: DULOXETINE HYDROCHLORIDE
     Indication: Migraine
     Dosage: ROUTE: UNKNOWN
     Route: 065
  15. DULOXETINE HYDROCHLORIDE [Suspect]
     Active Substance: DULOXETINE HYDROCHLORIDE
  16. ENDOCET [Suspect]
     Active Substance: ACETAMINOPHEN\OXYCODONE HYDROCHLORIDE
     Indication: Migraine
     Dosage: ROUTE: OTHER
     Route: 065
  17. GABAPENTIN [Suspect]
     Active Substance: GABAPENTIN
     Indication: Product used for unknown indication
     Dosage: DOSE FORM: NOT SPECIFIED, ROUTE: UNKNOWN
     Route: 065
  18. KETAMINE HYDROCHLORIDE [Suspect]
     Active Substance: KETAMINE HYDROCHLORIDE
     Indication: Migraine
     Dosage: ROUTE: UNKNOWN
     Route: 065
  19. NORTRIPTYLINE [Suspect]
     Active Substance: NORTRIPTYLINE
     Indication: Product used for unknown indication
     Dosage: ROUTE: UNKNOWN
     Route: 065
  20. NORTRIPTYLINE HYDROCHLORIDE [Suspect]
     Active Substance: NORTRIPTYLINE HYDROCHLORIDE
     Indication: Product used for unknown indication
     Dosage: ROUTE: OTHER
     Route: 065
  21. ALMOTRIPTAN MALATE [Suspect]
     Active Substance: ALMOTRIPTAN MALATE
     Indication: Product used for unknown indication
     Dosage: ROUTE: UNKNOWN
     Route: 065
  22. AMITRIPTYLINE [Suspect]
     Active Substance: AMITRIPTYLINE
     Indication: Product used for unknown indication
     Route: 065
  23. BOTOX [Suspect]
     Active Substance: ONABOTULINUMTOXINA
     Indication: Product used for unknown indication
     Dosage: DOSE FORM: POWDER FOR SOLUTION INTRAMUSCULAR, ROUTE: UNKNOWN
     Route: 065
  24. BOTOX [Suspect]
     Active Substance: ONABOTULINUMTOXINA
  25. BOTOX [Suspect]
     Active Substance: ONABOTULINUMTOXINA
  26. BOTOX [Suspect]
     Active Substance: ONABOTULINUMTOXINA
  27. BOTOX [Suspect]
     Active Substance: ONABOTULINUMTOXINA
  28. BOTOX [Suspect]
     Active Substance: ONABOTULINUMTOXINA
  29. BOTOX [Suspect]
     Active Substance: ONABOTULINUMTOXINA
  30. BOTOX [Suspect]
     Active Substance: ONABOTULINUMTOXINA
  31. BOTOX [Suspect]
     Active Substance: ONABOTULINUMTOXINA
  32. BOTOX [Suspect]
     Active Substance: ONABOTULINUMTOXINA
  33. BOTOX [Suspect]
     Active Substance: ONABOTULINUMTOXINA
  34. BOTOX [Suspect]
     Active Substance: ONABOTULINUMTOXINA
  35. BOTOX [Suspect]
     Active Substance: ONABOTULINUMTOXINA
  36. BOTOX [Suspect]
     Active Substance: ONABOTULINUMTOXINA
  37. BOTOX [Suspect]
     Active Substance: ONABOTULINUMTOXINA
  38. BOTOX [Suspect]
     Active Substance: ONABOTULINUMTOXINA
  39. BOTOX [Suspect]
     Active Substance: ONABOTULINUMTOXINA
  40. BOTOX [Suspect]
     Active Substance: ONABOTULINUMTOXINA
  41. BOTOX [Suspect]
     Active Substance: ONABOTULINUMTOXINA
  42. BOTOX [Suspect]
     Active Substance: ONABOTULINUMTOXINA
  43. BOTOX [Suspect]
     Active Substance: ONABOTULINUMTOXINA
  44. BOTOX [Suspect]
     Active Substance: ONABOTULINUMTOXINA
  45. BOTOX [Suspect]
     Active Substance: ONABOTULINUMTOXINA
  46. BOTOX [Suspect]
     Active Substance: ONABOTULINUMTOXINA
  47. BOTOX [Suspect]
     Active Substance: ONABOTULINUMTOXINA
  48. BOTOX [Suspect]
     Active Substance: ONABOTULINUMTOXINA
  49. BOTOX [Suspect]
     Active Substance: ONABOTULINUMTOXINA
  50. BOTOX [Suspect]
     Active Substance: ONABOTULINUMTOXINA
  51. BOTOX [Suspect]
     Active Substance: ONABOTULINUMTOXINA
  52. BOTOX [Suspect]
     Active Substance: ONABOTULINUMTOXINA
  53. BOTOX [Suspect]
     Active Substance: ONABOTULINUMTOXINA
  54. BOTOX [Suspect]
     Active Substance: ONABOTULINUMTOXINA
  55. BOTOX [Suspect]
     Active Substance: ONABOTULINUMTOXINA
  56. BOTOX [Suspect]
     Active Substance: ONABOTULINUMTOXINA
  57. BOTOX [Suspect]
     Active Substance: ONABOTULINUMTOXINA
  58. BOTOX [Suspect]
     Active Substance: ONABOTULINUMTOXINA
  59. BOTOX [Suspect]
     Active Substance: ONABOTULINUMTOXINA
  60. BOTOX [Suspect]
     Active Substance: ONABOTULINUMTOXINA
  61. BOTOX [Suspect]
     Active Substance: ONABOTULINUMTOXINA
  62. BOTOX [Suspect]
     Active Substance: ONABOTULINUMTOXINA
  63. BOTOX [Suspect]
     Active Substance: ONABOTULINUMTOXINA
  64. BOTOX [Suspect]
     Active Substance: ONABOTULINUMTOXINA
  65. BOTOX [Suspect]
     Active Substance: ONABOTULINUMTOXINA
  66. BOTOX [Suspect]
     Active Substance: ONABOTULINUMTOXINA
  67. BOTOX [Suspect]
     Active Substance: ONABOTULINUMTOXINA
  68. HYDROMORPHONE [Suspect]
     Active Substance: HYDROMORPHONE
     Indication: Migraine
     Dosage: DOSE FORM: NOT SPECIFIED, ROUTE: UNKNOWN
     Route: 065
  69. HYDROMORPHONE HYDROCHLORIDE [Suspect]
     Active Substance: HYDROMORPHONE HYDROCHLORIDE
     Indication: Product used for unknown indication
     Dosage: ROUTE: UNKNOWN
     Route: 065
  70. MORPHINE SULFATE [Suspect]
     Active Substance: MORPHINE SULFATE
     Indication: Migraine
     Dosage: DOSE FORM: NOT SPECIFIED, ROUTE: UNKNOWN
     Route: 065
  71. NAPROXEN [Suspect]
     Active Substance: NAPROXEN
     Indication: Product used for unknown indication
     Dosage: DOSE FORM: NOT SPECIFIED, ROUTE: OTHER
     Route: 065
  72. NAPROXEN [Suspect]
     Active Substance: NAPROXEN
     Dosage: ROUTE: OTHER
  73. NAPROXEN [Suspect]
     Active Substance: NAPROXEN
     Dosage: ROUTE: OTHER
  74. NAPROXEN [Suspect]
     Active Substance: NAPROXEN
     Dosage: ROUTE: OTHER
  75. NAPROXEN [Suspect]
     Active Substance: NAPROXEN
     Dosage: ROUTE: OTHER
  76. NAPROXEN [Suspect]
     Active Substance: NAPROXEN
     Dosage: ROUTE: OTHER
  77. NAPROXEN [Suspect]
     Active Substance: NAPROXEN
     Dosage: ROUTE: OTHER
  78. NAPROXEN [Suspect]
     Active Substance: NAPROXEN
     Dosage: ROUTE: OTHER
  79. NAPROXEN [Suspect]
     Active Substance: NAPROXEN
     Dosage: ROUTE: OTHER
  80. NAPROXEN [Suspect]
     Active Substance: NAPROXEN
     Dosage: ROUTE: OTHER
  81. NAPROXEN [Suspect]
     Active Substance: NAPROXEN
     Dosage: ROUTE: OTHER
  82. NAPROXEN [Suspect]
     Active Substance: NAPROXEN
     Dosage: ROUTE: OTHER
  83. NAPROXEN [Suspect]
     Active Substance: NAPROXEN
     Dosage: ROUTE: OTHER
  84. ONDANSETRON HYDROCHLORIDE [Suspect]
     Active Substance: ONDANSETRON HYDROCHLORIDE
     Indication: Migraine
     Dosage: ROUTE: OTHER
     Route: 065
  85. ONDANSETRON HYDROCHLORIDE [Suspect]
     Active Substance: ONDANSETRON HYDROCHLORIDE
     Dosage: ROUTE: OTHER
  86. TENORETIC [Suspect]
     Active Substance: ATENOLOL\CHLORTHALIDONE
     Indication: Product used for unknown indication
     Dosage: ROUTE: OTHER
     Route: 065
  87. TORADOL [Suspect]
     Active Substance: KETOROLAC TROMETHAMINE
     Indication: Migraine
     Dosage: DOSE FORM: NOT SPECIFIED, ROUTE: UNKNOWN
     Route: 065
  88. TRAMADOL HYDROCHLORIDE [Suspect]
     Active Substance: TRAMADOL HYDROCHLORIDE
     Indication: Migraine
     Dosage: DOSE FORM: NOT SPECIFIED, ROUTE: UNKNOWN
     Route: 065
  89. TRIAMCINOLONE ACETONIDE [Suspect]
     Active Substance: TRIAMCINOLONE ACETONIDE
     Indication: Migraine
     Dosage: DOSE FORM: SUSPENSION INTRA- ARTICULAR, ROUTE: UNKNOWN
     Route: 065
  90. VENLAFAXINE HYDROCHLORIDE [Suspect]
     Active Substance: VENLAFAXINE HYDROCHLORIDE
     Indication: Migraine
     Dosage: ROUTE: UNKNOWN
     Route: 065
  91. PROPRANOLOL [Suspect]
     Active Substance: PROPRANOLOL HYDROCHLORIDE
     Indication: Migraine
     Dosage: DOSE FORM: NOT SPECIFIED, ROUTE: UNKNOWN
     Route: 065
  92. OXYCODONE HYDROCHLORIDE [Suspect]
     Active Substance: OXYCODONE HYDROCHLORIDE
     Indication: Migraine
     Dosage: DOSE FORM: NOT SPECIFIED, ROUTE: OTHER
     Route: 065
  93. RIZATRIPTAN BENZOATE [Suspect]
     Active Substance: RIZATRIPTAN BENZOATE
     Indication: Product used for unknown indication
     Dosage: ROUTE: UNKNOWN
     Route: 065
  94. ACETAMINOPHEN\TRAMADOL [Suspect]
     Active Substance: ACETAMINOPHEN\TRAMADOL
     Indication: Migraine
     Dosage: ROUTE: UNKNOWN
     Route: 065

REACTIONS (8)
  - Nephrolithiasis [Unknown]
  - Nightmare [Unknown]
  - Nausea [Unknown]
  - Hyperhidrosis [Unknown]
  - Drug ineffective [Unknown]
  - Sedation [Unknown]
  - Product use in unapproved indication [Unknown]
  - Off label use [Unknown]
